FAERS Safety Report 14319241 (Version 3)
Quarter: 2018Q3

REPORT INFORMATION
  Report Type: Spontaneous
  Country: US (occurrence: US)
  Receive Date: 20171222
  Receipt Date: 20180809
  Transmission Date: 20181010
  Serious: Yes (Other)
  Sender: FDA-Public Use
  Company Number: US-PFIZER INC-2017476348

PATIENT
  Age: 94 Year
  Sex: Female

DRUGS (1)
  1. DOXYCYCLINE HYCLATE. [Suspect]
     Active Substance: DOXYCYCLINE HYCLATE
     Indication: URINARY TRACT INFECTION
     Dosage: UNK, 1X/DAY
     Dates: start: 201711

REACTIONS (5)
  - Age-related macular degeneration [Unknown]
  - Osteoporosis [Unknown]
  - Scoliosis [Unknown]
  - Cervical vertebral fracture [Unknown]
  - Diaphragmatic rupture [Unknown]

NARRATIVE: CASE EVENT DATE: 201801
